FAERS Safety Report 19511595 (Version 2)
Quarter: 2021Q3

REPORT INFORMATION
  Report Type: Other
  Country: IL (occurrence: IL)
  Receive Date: 20210709
  Receipt Date: 20210913
  Transmission Date: 20211014
  Serious: Yes (Other)
  Sender: FDA-Public Use
  Company Number: IL-ROCHE-2864553

PATIENT

DRUGS (3)
  1. RITUXIMAB. [Suspect]
     Active Substance: RITUXIMAB
     Indication: B-CELL LYMPHOMA REFRACTORY
     Dosage: FOR SIX 28 DAYS CYCLES
     Route: 042
  2. IBRUTINIB [Suspect]
     Active Substance: IBRUTINIB
     Indication: B-CELL LYMPHOMA REFRACTORY
     Dosage: WAS ADMINISTERED CONTINUOUSLY FROM DAY 1 .
     Route: 048
  3. BENDAMUSTINE [Suspect]
     Active Substance: BENDAMUSTINE
     Indication: B-CELL LYMPHOMA REFRACTORY
     Dosage: 90/70 MG/M 2 DAY 1 AND 2
     Route: 065

REACTIONS (4)
  - Atrial fibrillation [Unknown]
  - Infection [Unknown]
  - Atrial flutter [Unknown]
  - Gastrointestinal haemorrhage [Unknown]
